FAERS Safety Report 24027218 (Version 1)
Quarter: 2024Q2

REPORT INFORMATION
  Report Type: Spontaneous
  Country: JP (occurrence: JP)
  Receive Date: 20240628
  Receipt Date: 20240628
  Transmission Date: 20240716
  Serious: No
  Sender: FDA-Public Use
  Company Number: JP-TAKEDA-2020TUS045900

PATIENT
  Age: 19 Year
  Sex: Female

DRUGS (6)
  1. INTUNIV [Suspect]
     Active Substance: GUANFACINE HYDROCHLORIDE
     Indication: Attention deficit hyperactivity disorder
     Dosage: 1 MILLIGRAM
     Route: 048
     Dates: start: 20190913, end: 20201017
  2. INTUNIV [Suspect]
     Active Substance: GUANFACINE HYDROCHLORIDE
     Dosage: 3 MILLIGRAM
     Route: 048
     Dates: start: 20201018, end: 20201020
  3. INTUNIV [Suspect]
     Active Substance: GUANFACINE HYDROCHLORIDE
     Dosage: 3 MILLIGRAM
     Route: 048
     Dates: start: 20201022
  4. LUNESTA [Concomitant]
     Active Substance: ESZOPICLONE
     Indication: Sleep disorder
     Dosage: 2 MILLIGRAM
     Route: 048
     Dates: start: 20200601
  5. VALPROATE SODIUM [Concomitant]
     Active Substance: VALPROATE SODIUM
     Indication: Affective disorder
     Dosage: 400 MILLIGRAM
     Route: 048
     Dates: start: 20190913
  6. QUETIAPINE [Concomitant]
     Active Substance: QUETIAPINE
     Indication: Affective disorder
     Dosage: 37.5 MILLIGRAM
     Route: 048
     Dates: start: 20200601

REACTIONS (2)
  - Somnolence [Recovered/Resolved]
  - Hypotension [Recovered/Resolved]

NARRATIVE: CASE EVENT DATE: 20201019
